FAERS Safety Report 13629385 (Version 1)
Quarter: 2017Q2

REPORT INFORMATION
  Report Type: Spontaneous
  Country: DE (occurrence: DE)
  Receive Date: 20170608
  Receipt Date: 20170608
  Transmission Date: 20170830
  Serious: Yes (Other)
  Sender: FDA-Public Use
  Company Number: GXKR2017DE003042

PATIENT

DRUGS (1)
  1. VENLAFAXIN HEXAL [Suspect]
     Active Substance: VENLAFAXINE HYDROCHLORIDE
     Indication: PRODUCT USED FOR UNKNOWN INDICATION
     Dosage: UNK, INTAKE SINCE 6 YEARS
     Route: 048
     Dates: start: 2011

REACTIONS (1)
  - Hypersensitivity vasculitis [Unknown]
